FAERS Safety Report 7032163-6 (Version None)
Quarter: 2010Q4

REPORT INFORMATION
  Report Type: 
  Country: None (occurrence: None)
  Receive Date: 20101007
  Receipt Date: 20100106
  Transmission Date: 20110411
  Serious: Yes (Life-Threatening, Hospitalization, Other)
  Sender: FDA-Public Use
  Company Number: FR-BRISTOL-MYERS SQUIBB COMPANY-14927297

PATIENT
  Age: 66 Year

DRUGS (4)
  1. CETUXIMAB [Suspect]
     Indication: COLON CANCER
     Dosage: MOST RECENT INFUSION BEFORE ONSET OF EVENT WAS ON 27-MAR-2008
     Route: 042
     Dates: start: 20070919, end: 20080327
  2. OXALIPLATIN [Suspect]
     Indication: COLON CANCER
     Dosage: MOST RECENT INFUSION BEFORE ONSET OF EVENT WAS ON 27-FEB-2008
     Route: 042
     Dates: start: 20070919, end: 20080227
  3. FLUOROURACIL [Suspect]
     Indication: COLON CANCER
     Dosage: MOST RECENT INFUSION BEFORE ONSET OF EVENT WAS ON 14-MAR-2008
     Route: 042
     Dates: start: 20070919, end: 20080314
  4. FOLINIC ACID [Suspect]
     Indication: COLON CANCER
     Dosage: MOST RECENT INFUSION BEFORE ONSET OF EVENT WAS ON 14-MAR-2008
     Route: 042
     Dates: start: 20070919, end: 20080314

REACTIONS (1)
  - LEFT VENTRICULAR DYSFUNCTION [None]
